FAERS Safety Report 25574601 (Version 5)
Quarter: 2025Q4

REPORT INFORMATION
  Report Type: Spontaneous
  Country: JP (occurrence: JP)
  Receive Date: 20250718
  Receipt Date: 20251123
  Transmission Date: 20260118
  Serious: Yes (Life-Threatening, Hospitalization)
  Sender: ASTELLAS
  Company Number: JP-ASTELLAS-2025-AER-036771

PATIENT
  Age: 80 Year
  Sex: Male
  Weight: 70 kg

DRUGS (14)
  1. PADCEV [Suspect]
     Active Substance: ENFORTUMAB VEDOTIN-EJFV
     Indication: Malignant neoplasm of renal pelvis
     Dosage: 95MG, 3 TIMES/4 WEEKS
     Route: 042
     Dates: start: 20250619, end: 20250703
  2. RESTAMIN KOWA CREAM [Concomitant]
     Indication: Pruritus
     Route: 065
     Dates: start: 20250626
  3. Magmitt tablet 330 [Concomitant]
     Indication: Nausea
     Route: 065
     Dates: start: 20250626
  4. Rabeprazole tablet 10 [Concomitant]
     Indication: Product used for unknown indication
     Route: 065
     Dates: start: 20250703
  5. METOCLOPRAMIDE tablet 5 [Concomitant]
     Indication: Nausea
     Route: 065
     Dates: start: 20250703
  6. METOCLOPRAMIDE tablet 5 [Concomitant]
     Indication: Nausea
  7. METOCLOPRAMIDE tablet 5 [Concomitant]
     Indication: Decreased appetite
  8. FILGRASTIM [Concomitant]
     Active Substance: FILGRASTIM
     Indication: Febrile neutropenia
     Route: 058
  9. CEFEPIME [Concomitant]
     Active Substance: CEFEPIME HYDROCHLORIDE
     Indication: Febrile neutropenia
     Dosage: 8 12H
     Route: 042
  10. CLOBETASOL [Concomitant]
     Active Substance: CLOBETASOL
     Indication: Skin disorder
     Route: 065
  11. PETROLATUM [Concomitant]
     Active Substance: PETROLATUM
     Indication: Skin disorder
     Route: 065
  12. ZINC OXIDE OINTMENT [Concomitant]
     Indication: Skin disorder
     Route: 065
  13. TAKECAB Tablets 20 [Concomitant]
     Indication: Dyspepsia
     Route: 065
     Dates: start: 20250724
  14. ENSURE H 250mL [Concomitant]
     Indication: Dyspepsia
     Dosage: 6CAN
     Route: 065
     Dates: start: 20250724

REACTIONS (4)
  - Febrile neutropenia [Recovered/Resolved]
  - Skin disorder [Recovered/Resolved]
  - Dyspepsia [Recovered/Resolved]
  - Peripheral motor neuropathy [Recovering/Resolving]

NARRATIVE: CASE EVENT DATE: 20250626
